FAERS Safety Report 15263817 (Version 1)
Quarter: 2018Q4

REPORT INFORMATION
  Report Type: Spontaneous
  Country: DE (occurrence: DE)
  Receive Date: 20180810
  Receipt Date: 20180810
  Transmission Date: 20190204
  Serious: Yes (Other)
  Sender: FDA-Public Use
  Company Number: DE-TEVA-2018-DE-936152

PATIENT
  Sex: Male

DRUGS (1)
  1. VALSARTAN 160MG ABZ-PHARMA FILMTABLETTEN [Suspect]
     Active Substance: VALSARTAN
     Route: 048
     Dates: start: 2013, end: 201807

REACTIONS (3)
  - Hypertensive crisis [Recovered/Resolved]
  - Product substitution issue [Unknown]
  - Blood pressure fluctuation [Recovered/Resolved]

NARRATIVE: CASE EVENT DATE: 201807
